FAERS Safety Report 13773138 (Version 1)
Quarter: 2017Q3

REPORT INFORMATION
  Report Type: Spontaneous
  Country: US (occurrence: US)
  Receive Date: 20170720
  Receipt Date: 20170720
  Transmission Date: 20171127
  Serious: Yes (Other)
  Sender: FDA-Public Use
  Company Number: US-PFIZER INC-2017311594

PATIENT
  Age: 65 Year
  Sex: Male

DRUGS (1)
  1. DESVENLAFAXINE SUCCINATE MONOHYDRATE [Suspect]
     Active Substance: DESVENLAFAXINE SUCCINATE
     Dosage: 50 MG, UNK

REACTIONS (6)
  - Dizziness [Unknown]
  - Constipation [Unknown]
  - Malaise [Unknown]
  - Diarrhoea [Unknown]
  - Syncope [Unknown]
  - Nausea [Unknown]
